FAERS Safety Report 25680455 (Version 1)
Quarter: 2025Q3

REPORT INFORMATION
  Report Type: Spontaneous
  Country: EU (occurrence: EU)
  Receive Date: 20250814
  Receipt Date: 20250814
  Transmission Date: 20251021
  Serious: Yes (Other)
  Sender: AUROBINDO
  Company Number: EU-TEVA-2022-RO-2826307

PATIENT
  Age: 76 Year
  Sex: Female

DRUGS (4)
  1. RISEDRONATE SODIUM [Suspect]
     Active Substance: RISEDRONATE SODIUM
     Indication: Osteoporosis postmenopausal
     Dosage: 35 MILLIGRAM, EVERY WEEK (5 MILLIGRAM DAILY)
     Route: 065
     Dates: start: 2020
  2. CALCIUM [Suspect]
     Active Substance: CALCIUM
     Indication: Osteoporosis postmenopausal
     Dosage: 1200 MILLIGRAM, ONCE A DAY
     Route: 065
     Dates: start: 2019
  3. DENOSUMAB [Suspect]
     Active Substance: DENOSUMAB
     Indication: Osteoporosis postmenopausal
     Route: 058
     Dates: start: 2021
  4. VITAMIN D [Suspect]
     Active Substance: VITAMIN D NOS
     Indication: Osteoporosis postmenopausal
     Dosage: 2000 INTERNATIONAL UNIT, ONCE A DAY
     Route: 065
     Dates: start: 2019

REACTIONS (1)
  - Drug ineffective [Unknown]
